FAERS Safety Report 4364624-2 (Version None)
Quarter: 2004Q2

REPORT INFORMATION
  Report Type: 
  Country: None (occurrence: None)
  Receive Date: 20040521
  Receipt Date: 20040505
  Transmission Date: 20050107
  Serious: Yes (Other)
  Sender: FDA-Public Use
  Company Number: US_0405102864

PATIENT
  Age: 37 Year
  Sex: Male
  Weight: 93 kg

DRUGS (6)
  1. HUMULIN N [Suspect]
     Dosage: 82 U DAY
     Dates: start: 19740101
  2. HUMULIN R [Suspect]
     Dosage: 14 U/1 IN THE MORNING
     Dates: start: 19960101
  3. PRINIVIL [Concomitant]
  4. LIPITOR [Concomitant]
  5. PROTONIX [Concomitant]
  6. ZOLOFT [Concomitant]

REACTIONS (2)
  - EYE HAEMORRHAGE [None]
  - PHARMACEUTICAL PRODUCT COMPLAINT [None]
